FAERS Safety Report 5301476-8 (Version None)
Quarter: 2007Q2

REPORT INFORMATION
  Report Type: 
  Country: None (occurrence: None)
  Receive Date: 20070412
  Receipt Date: 20070329
  Transmission Date: 20071010
  Serious: Yes (Death, Hospitalization, Other)
  Sender: FDA-Public Use
  Company Number: 2007S1000153

PATIENT
  Age: 18 Year
  Sex: Female
  Weight: 47 kg

DRUGS (7)
  1. CUBICIN [Suspect]
     Indication: BREAST CELLULITIS
     Dosage: 200 MG, XI; IV
     Route: 042
     Dates: start: 20070216, end: 20070216
  2. BACTRIM DS [Concomitant]
  3. PROMETHAZINE [Concomitant]
  4. LUTERA [Concomitant]
  5. ACETAMINOPHEN [Concomitant]
  6. DIPHENHYDRAMINE HCL [Concomitant]
  7. FEXOFENADINE [Concomitant]

REACTIONS (76)
  - ACTIVATED PARTIAL THROMBOPLASTIN TIME PROLONGED [None]
  - ADRENAL DISORDER [None]
  - AGITATION [None]
  - ANAPHYLACTIC REACTION [None]
  - APOPTOSIS [None]
  - AREFLEXIA [None]
  - BLOOD CALCIUM DECREASED [None]
  - BLOOD CREATINE PHOSPHOKINASE INCREASED [None]
  - BLOOD GLUCOSE INCREASED [None]
  - BLOOD IMMUNOGLOBULIN E INCREASED [None]
  - BLOOD IMMUNOGLOBULIN G INCREASED [None]
  - BLOOD POTASSIUM DECREASED [None]
  - BLOOD SODIUM INCREASED [None]
  - BLOOD URINE PRESENT [None]
  - BRAIN DEATH [None]
  - BRAIN NATRIURETIC PEPTIDE INCREASED [None]
  - BRAIN OEDEMA [None]
  - BREAST CYST [None]
  - BREAST NECROSIS [None]
  - CARBON DIOXIDE DECREASED [None]
  - CARDIAC FUNCTION TEST ABNORMAL [None]
  - CARDIO-RESPIRATORY ARREST [None]
  - CEREBRAL ARTERY THROMBOSIS [None]
  - CEREBRAL ISCHAEMIA [None]
  - CHEST X-RAY ABNORMAL [None]
  - CONDITION AGGRAVATED [None]
  - CONFUSIONAL STATE [None]
  - CORNEAL REFLEX DECREASED [None]
  - CYANOSIS [None]
  - DISSEMINATED INTRAVASCULAR COAGULATION [None]
  - DRUG TOXICITY [None]
  - ELECTROENCEPHALOGRAM ABNORMAL [None]
  - EXTRASYSTOLES [None]
  - GASTROINTESTINAL ISCHAEMIA [None]
  - GLUCOSE URINE PRESENT [None]
  - HAEMATOCRIT DECREASED [None]
  - HAEMOGLOBIN DECREASED [None]
  - HEPATIC CONGESTION [None]
  - HEPATIC FAILURE [None]
  - HYPOPERFUSION [None]
  - HYPOTENSION [None]
  - ILEUS [None]
  - ILL-DEFINED DISORDER [None]
  - INFLUENZA SEROLOGY POSITIVE [None]
  - INFUSION SITE HAEMORRHAGE [None]
  - ISCHAEMIA [None]
  - LOSS OF CONSCIOUSNESS [None]
  - LUNG INFILTRATION [None]
  - MENINGITIS [None]
  - MOUTH HAEMORRHAGE [None]
  - MULTI-ORGAN FAILURE [None]
  - MYOCARDIAL ISCHAEMIA [None]
  - NEUROLOGICAL SYMPTOM [None]
  - NEUTROPHIL MORPHOLOGY ABNORMAL [None]
  - PLEURAL ADHESION [None]
  - PULMONARY CONGESTION [None]
  - PULMONARY OEDEMA [None]
  - PUPIL FIXED [None]
  - PYREXIA [None]
  - RENAL FAILURE ACUTE [None]
  - RENAL ISCHAEMIA [None]
  - RESPIRATORY FAILURE [None]
  - SEPSIS [None]
  - SEPTIC SHOCK [None]
  - SHIFT TO THE LEFT [None]
  - SINUS TACHYCARDIA [None]
  - SKIN BACTERIAL INFECTION [None]
  - SPLEEN CONGESTION [None]
  - THROMBOCYTOPENIA [None]
  - TYPE I HYPERSENSITIVITY [None]
  - UNRESPONSIVE TO STIMULI [None]
  - VASCULITIS [None]
  - VIRAL INFECTION [None]
  - WHITE BLOOD CELL COUNT DECREASED [None]
  - WHITE BLOOD CELL COUNT INCREASED [None]
  - WOUND INFECTION STAPHYLOCOCCAL [None]
